FAERS Safety Report 10198467 (Version 1)
Quarter: 2014Q2

REPORT INFORMATION
  Report Type: Spontaneous
  Country: US (occurrence: US)
  Receive Date: 20140527
  Receipt Date: 20140527
  Transmission Date: 20141212
  Serious: No
  Sender: FDA-Public Use
  Company Number: US-NOVEN-13US007289

PATIENT
  Age: 12 Year
  Sex: Female

DRUGS (1)
  1. DAYTRANA [Suspect]
     Indication: ATTENTION DEFICIT/HYPERACTIVITY DISORDER
     Dosage: 10 MG, MON-FRI DURING SCHOOL YEAR
     Route: 062
     Dates: end: 20130607

REACTIONS (1)
  - Depressed mood [Not Recovered/Not Resolved]
